FAERS Safety Report 5548746-6 (Version None)
Quarter: 2007Q4

REPORT INFORMATION
  Report Type: 
  Country: None (occurrence: None)
  Receive Date: 20071206
  Receipt Date: 20071129
  Transmission Date: 20080405
  Serious: Yes (Other)
  Sender: FDA-Public Use
  Company Number: 2007SP023934

PATIENT
  Age: 59 Year
  Sex: Male
  Weight: 85 kg

DRUGS (8)
  1. NASONEX [Suspect]
     Dosage: 2 DF; NAS;NAS
     Route: 045
     Dates: start: 20060901
  2. NASONEX [Suspect]
     Dosage: 2 DF; NAS;NAS
     Route: 045
     Dates: start: 20071112
  3. AMLODIPINE [Concomitant]
  4. CETIRIZINE HCL [Concomitant]
  5. HYDROCHLORIDE [Concomitant]
  6. SIMVASTATIN [Concomitant]
  7. LISINOPRIL [Concomitant]
  8. LOSARTAN POTASSIUM [Concomitant]

REACTIONS (2)
  - ANOSMIA [None]
  - BLOOD CHOLESTEROL INCREASED [None]
